FAERS Safety Report 9312115 (Version 1)
Quarter: 2013Q2

REPORT INFORMATION
  Report Type: Spontaneous
  Country: GB (occurrence: GB)
  Receive Date: 20130528
  Receipt Date: 20130528
  Transmission Date: 20140414
  Serious: Yes (Hospitalization)
  Sender: FDA-Public Use
  Company Number: GB-TEVA-407654ISR

PATIENT
  Age: 75 Year
  Sex: Male

DRUGS (4)
  1. ATENOLOL [Suspect]
     Dosage: 100 MILLIGRAM DAILY;
  2. ATENOLOL [Suspect]
     Dosage: 50 MILLIGRAM DAILY;
  3. ASPIRIN [Concomitant]
  4. SIMVASTATIN [Concomitant]

REACTIONS (2)
  - Circulatory collapse [Unknown]
  - Bradycardia [Unknown]
